FAERS Safety Report 24012810 (Version 1)
Quarter: 2024Q2

REPORT INFORMATION
  Report Type: Spontaneous
  Country: US (occurrence: US)
  Receive Date: 20240626
  Receipt Date: 20240626
  Transmission Date: 20240716
  Serious: Yes (Other)
  Sender: FDA-Public Use
  Company Number: US-BEH-2024173746

PATIENT
  Sex: Male

DRUGS (1)
  1. HIZENTRA [Suspect]
     Active Substance: HUMAN IMMUNOGLOBULIN G
     Indication: Immunodeficiency common variable
     Dosage: 12 G, QW
     Route: 058
     Dates: start: 202301

REACTIONS (5)
  - Atrial fibrillation [Unknown]
  - Dyspnoea [Unknown]
  - Injection site pain [Unknown]
  - Hypophagia [Unknown]
  - Weight decreased [Unknown]
